FAERS Safety Report 11976047 (Version 1)
Quarter: 2016Q1

REPORT INFORMATION
  Report Type: Spontaneous
  Country: TW (occurrence: TW)
  Receive Date: 20160129
  Receipt Date: 20160129
  Transmission Date: 20160526
  Serious: Yes (Death, Other)
  Sender: FDA-Public Use
  Company Number: TW-ALEMBIC PHARMACUETICALS LIMITED-2016SCAL000042

PATIENT
  Age: 49 Year
  Sex: Male

DRUGS (1)
  1. LITHIUM CARBONATE. [Suspect]
     Active Substance: LITHIUM CARBONATE
     Indication: BIPOLAR DISORDER
     Dosage: UNK

REACTIONS (6)
  - Nephropathy [Fatal]
  - Tubulointerstitial nephritis [Fatal]
  - Glomerulosclerosis [Fatal]
  - Focal segmental glomerulosclerosis [Fatal]
  - Respiratory failure [Fatal]
  - Septic shock [Fatal]
